FAERS Safety Report 5876076-1 (Version None)
Quarter: 2008Q3

REPORT INFORMATION
  Report Type: 
  Country: None (occurrence: None)
  Receive Date: 20080910
  Receipt Date: 20080902
  Transmission Date: 20090109
  Serious: Yes (Other)
  Sender: FDA-Public Use
  Company Number: IE-WYE-G02101908

PATIENT
  Age: 35 Year
  Sex: Male

DRUGS (9)
  1. EFFEXOR XR [Suspect]
     Indication: DEPRESSION
     Dates: start: 20080401, end: 20080101
  2. EFFEXOR XR [Suspect]
     Dosage: UNKNOWN
     Dates: start: 20080101
  3. DALMANE [Concomitant]
     Dosage: UNKNOWN
  4. IMODIUM [Concomitant]
     Dosage: UNKNOWN
  5. NEXIUM [Concomitant]
     Dosage: UNKNOWN
  6. COLOFAC [Concomitant]
     Dosage: UNKNOWN
  7. MOTILIUM [Concomitant]
     Dosage: UNKNOWN
  8. METHADONE HCL [Concomitant]
     Dosage: UNKNOWN
  9. DIAZEPAM [Concomitant]
     Dosage: UNKNOWN

REACTIONS (2)
  - DRUG WITHDRAWAL SYNDROME [None]
  - FORMICATION [None]
